FAERS Safety Report 5738675-7 (Version None)
Quarter: 2008Q2

REPORT INFORMATION
  Report Type: 
  Country: None (occurrence: None)
  Receive Date: 20080513
  Receipt Date: 20080428
  Transmission Date: 20081010
  Serious: Yes (Other)
  Sender: FDA-Public Use
  Company Number: SPV1-2008-00856

PATIENT
  Age: 15 Year
  Sex: Female
  Weight: 56.7 kg

DRUGS (2)
  1. VYVANSE [Suspect]
     Indication: ATTENTION DEFICIT/HYPERACTIVITY DISORDER
     Dosage: 70 MG, 1X/DAY:QD, ORAL, 30 MG, 1X/DAY:QD, ORAL
     Route: 048
     Dates: start: 20080331, end: 20080405
  2. VYVANSE [Suspect]
     Indication: ATTENTION DEFICIT/HYPERACTIVITY DISORDER
     Dosage: 70 MG, 1X/DAY:QD, ORAL, 30 MG, 1X/DAY:QD, ORAL
     Route: 048
     Dates: start: 20080407

REACTIONS (9)
  - AGGRESSION [None]
  - AGITATION [None]
  - DRUG PRESCRIBING ERROR [None]
  - HOMICIDAL IDEATION [None]
  - IRRITABILITY [None]
  - NERVOUSNESS [None]
  - OFF LABEL USE [None]
  - PHYSICAL ASSAULT [None]
  - RESTLESSNESS [None]
